FAERS Safety Report 9359056 (Version 1)
Quarter: 2013Q2

REPORT INFORMATION
  Report Type: Spontaneous
  Country: PT (occurrence: PT)
  Receive Date: 20130620
  Receipt Date: 20130620
  Transmission Date: 20140414
  Serious: Yes (Hospitalization)
  Sender: FDA-Public Use
  Company Number: PT-BAYER-2013-073636

PATIENT
  Age: 48 Year
  Sex: Female

DRUGS (8)
  1. ACETYLSALICYLIC ACID [Suspect]
     Dosage: DAILY DOSE 150 MG
  2. ACETYLSALICYLIC ACID [Suspect]
  3. NAPROXEN SODIUM HIGH DOSE (} 220 MG) [Suspect]
     Dosage: 1000 MG DAILY MAXIMUM
  4. NAPROXEN SODIUM HIGH DOSE (} 220 MG) [Suspect]
     Dosage: UNK
  5. DEFLAZACORT [Concomitant]
     Dosage: DAILY DOSE 6 MG
  6. DEFLAZACORT [Concomitant]
  7. HYDROXYCHLOROQUINE [Concomitant]
     Dosage: DAILY DOSE 400 MG
  8. HYDROXYCHLOROQUINE [Concomitant]

REACTIONS (2)
  - Autoimmune hepatitis [Recovered/Resolved with Sequelae]
  - Drug-induced liver injury [Recovered/Resolved with Sequelae]
